FAERS Safety Report 7607396-8 (Version None)
Quarter: 2011Q3

REPORT INFORMATION
  Report Type: 
  Country: None (occurrence: None)
  Receive Date: 20110713
  Receipt Date: 20110629
  Transmission Date: 20111222
  Serious: Yes (Death, Other)
  Sender: FDA-Public Use
  Company Number: BE-TYCO HEALTHCARE/MALLINCKRODT-T201101323

PATIENT
  Age: 17 Year
  Sex: Male

DRUGS (1)
  1. TRAMADOL HCL [Suspect]
     Indication: PRODUCT USED FOR UNKNOWN INDICATION
     Dosage: UNK

REACTIONS (3)
  - OVERDOSE [None]
  - ACUTE PULMONARY OEDEMA [None]
  - COMPLETED SUICIDE [None]
